FAERS Safety Report 17857045 (Version 1)
Quarter: 2020Q2

REPORT INFORMATION
  Report Type: Spontaneous
  Country: SI (occurrence: SI)
  Receive Date: 20200603
  Receipt Date: 20200603
  Transmission Date: 20200714
  Serious: Yes (Other)
  Sender: FDA-Public Use
  Company Number: SI-BAYER-2020-096806

PATIENT
  Age: 78 Year
  Sex: Male

DRUGS (4)
  1. STIVARGA [Suspect]
     Active Substance: REGORAFENIB
     Indication: HEPATOCELLULAR CARCINOMA
     Dosage: 120 MG DAILY IN THE SECOND WEEK
     Dates: start: 2019
  2. STIVARGA [Suspect]
     Active Substance: REGORAFENIB
     Indication: HEPATOCELLULAR CARCINOMA
     Dosage: 160 MG, QD
     Dates: start: 2019
  3. STIVARGA [Suspect]
     Active Substance: REGORAFENIB
     Indication: HEPATOCELLULAR CARCINOMA
     Dosage: 120 MG DAILY
     Dates: end: 202001
  4. STIVARGA [Suspect]
     Active Substance: REGORAFENIB
     Indication: HEPATOCELLULAR CARCINOMA
     Dosage: 80 MG DAILY IN FIRST WEEK
     Dates: start: 201903

REACTIONS (9)
  - Stomatitis [None]
  - Fatigue [Recovering/Resolving]
  - Palmar-plantar erythrodysaesthesia syndrome [Recovering/Resolving]
  - Metastases to lymph nodes [None]
  - Respiratory tract infection [Recovered/Resolved]
  - Hepatocellular carcinoma [None]
  - Decreased appetite [None]
  - Hepatic rupture [None]
  - Eating disorder [None]

NARRATIVE: CASE EVENT DATE: 2019
